FAERS Safety Report 15268410 (Version 1)
Quarter: 2018Q3

REPORT INFORMATION
  Report Type: Spontaneous
  Country: US (occurrence: US)
  Receive Date: 20180726
  Receipt Date: 20180726
  Transmission Date: 20181010
  Serious: Yes (Other)
  Sender: FDA-Public Use
  Company Number: None

PATIENT
  Age: 56 Year
  Sex: Female

DRUGS (13)
  1. TIVICAY [Concomitant]
     Active Substance: DOLUTEGRAVIR SODIUM
     Dates: start: 20170726
  2. GLIPIZIDE ER 10MG TAB [Concomitant]
     Dates: start: 20160810
  3. LANTUS U?1OO INSULIN [Concomitant]
     Dates: start: 20160828
  4. RIZATRIPTAN ODT 10MG TABLET [Concomitant]
     Dates: start: 20180510
  5. GABAPENTIN 300MG CAPSULE [Concomitant]
     Active Substance: GABAPENTIN
     Dates: start: 20180209
  6. EDURANT [Suspect]
     Active Substance: RILPIVIRINE HYDROCHLORIDE
     Indication: HIV INFECTION
     Route: 048
     Dates: start: 20170726, end: 20180726
  7. LIPITOR 20MG TABLET [Concomitant]
  8. FUROSEMIDE 20MG [Concomitant]
     Active Substance: FUROSEMIDE
     Dates: start: 20170207
  9. SULFAMETH/TMP 800/160MG TAB [Concomitant]
     Dates: start: 20160828
  10. TIVICAY [Suspect]
     Active Substance: DOLUTEGRAVIR SODIUM
     Indication: HIV INFECTION
     Route: 048
     Dates: start: 20170725, end: 20180726
  11. EDURANT [Concomitant]
     Active Substance: RILPIVIRINE HYDROCHLORIDE
     Dates: start: 20170726
  12. LOSARTAN 50MG [Concomitant]
     Active Substance: LOSARTAN
     Dates: start: 20171125
  13. IBUPROFEN 800MG TABLET [Concomitant]
     Active Substance: IBUPROFEN
     Dates: start: 20170817

REACTIONS (3)
  - Rash [None]
  - Pruritus [None]
  - Blister [None]

NARRATIVE: CASE EVENT DATE: 20180725
